FAERS Safety Report 16700903 (Version 2)
Quarter: 2019Q3

REPORT INFORMATION
  Report Type: Other
  Country: IT (occurrence: IT)
  Receive Date: 20190814
  Receipt Date: 20190829
  Transmission Date: 20191004
  Serious: Yes (Other)
  Sender: FDA-Public Use
  Company Number: IT-LUPIN PHARMACEUTICALS INC.-2019-05113

PATIENT
  Age: 64 Year
  Sex: Female

DRUGS (8)
  1. LEVETIRACETAM. [Suspect]
     Active Substance: LEVETIRACETAM
     Dosage: 250 MILLIGRAM, BID
     Route: 065
     Dates: start: 2012
  2. LEVETIRACETAM. [Suspect]
     Active Substance: LEVETIRACETAM
     Dosage: 500 MILLIGRAM, BID
     Route: 065
     Dates: start: 2012
  3. LEVETIRACETAM. [Suspect]
     Active Substance: LEVETIRACETAM
     Indication: SEIZURE PROPHYLAXIS
     Dosage: 500 MILLIGRAM, BID
     Route: 065
  4. KEPPRA [Suspect]
     Active Substance: LEVETIRACETAM
     Indication: SEIZURE PROPHYLAXIS
     Dosage: 500 MILLIGRAM, QD (1/2 TABLET OF 500 MG IN MORNING AND IN EVENING)
     Route: 065
  5. LEVETIRACETAM. [Suspect]
     Active Substance: LEVETIRACETAM
     Dosage: 500 MILLIGRAM, QD (500 MG TABLET DIVIDED IN HALF IN THE MORNING AND IN THE EVENING)
     Route: 065
  6. LEVETIRACETAM. [Suspect]
     Active Substance: LEVETIRACETAM
     Dosage: 2 DOSAGE FORM, QD
     Route: 065
  7. CORTISONE [Suspect]
     Active Substance: CORTISONE
     Indication: ADVERSE DRUG REACTION
     Dosage: 01 DOSAGE FORM, BID
     Route: 042
  8. CORTISONE [Suspect]
     Active Substance: CORTISONE
     Dosage: 120 GTT, QD (DROPS)
     Route: 065

REACTIONS (3)
  - Coma [Unknown]
  - Off label use [Unknown]
  - Metastases to central nervous system [Unknown]
